FAERS Safety Report 9751651 (Version 1)
Quarter: 2013Q4

REPORT INFORMATION
  Report Type: Report from Study
  Country: US (occurrence: US)
  Receive Date: 20131212
  Receipt Date: 20131212
  Transmission Date: 20140711
  Serious: Yes (Other)
  Sender: FDA-Public Use
  Company Number: US-ABBVIE-13P-163-1175746-00

PATIENT
  Age: 57 Year
  Sex: Female
  Weight: 113.5 kg

DRUGS (1)
  1. HUMIRA [Suspect]
     Indication: PSORIATIC ARTHROPATHY
     Dates: start: 2007

REACTIONS (9)
  - Dermal cyst [Recovered/Resolved]
  - Nasopharyngitis [Not Recovered/Not Resolved]
  - Throat irritation [Not Recovered/Not Resolved]
  - Productive cough [Not Recovered/Not Resolved]
  - Incision site pain [Recovered/Resolved]
  - Incision site erythema [Recovered/Resolved]
  - Incision site infection [Recovered/Resolved]
  - Cyst rupture [Unknown]
  - Scar [Unknown]
